FAERS Safety Report 9490706 (Version 1)
Quarter: 2013Q3

REPORT INFORMATION
  Report Type: Spontaneous
  Country: FR (occurrence: None)
  Receive Date: 20130826
  Receipt Date: 20130826
  Transmission Date: 20140515
  Serious: Yes (Hospitalization)
  Sender: FDA-Public Use
  Company Number: SYM-2013-08981

PATIENT
  Age: 76 Year
  Sex: Male

DRUGS (3)
  1. FLAGYL [Suspect]
     Indication: INFECTION
     Dosage: 2 IN 1 D
     Route: 048
     Dates: start: 20130618, end: 20130624
  2. TAVANIC [Suspect]
     Indication: PNEUMONIA
     Route: 048
     Dates: start: 20130625, end: 20130628
  3. AUGMENTIN (AMOXI-CLAVULANICO) (AMOXCILLIN, CLAVULANIC ACID) [Suspect]
     Indication: INFECTION
     Dates: start: 20130618, end: 20130624

REACTIONS (3)
  - Henoch-Schonlein purpura [None]
  - Rash maculo-papular [None]
  - Proteinuria [None]
